FAERS Safety Report 4823283-2 (Version None)
Quarter: 2005Q4

REPORT INFORMATION
  Report Type: 
  Country: None (occurrence: None)
  Receive Date: 20051107
  Receipt Date: 20051024
  Transmission Date: 20060501
  Serious: Yes (Hospitalization)
  Sender: FDA-Public Use
  Company Number: US_0510123280

PATIENT
  Age: 58 Year
  Sex: Female

DRUGS (2)
  1. FLUOXETINE HCL [Suspect]
     Indication: BIPOLAR DISORDER
     Dosage: 20 MG DAY
  2. FLUPENTIXOL [Concomitant]

REACTIONS (4)
  - AGGRESSION [None]
  - DRUG INTERACTION POTENTIATION [None]
  - IRRITABILITY [None]
  - MANIA [None]
